FAERS Safety Report 10842730 (Version 1)
Quarter: 2015Q1

REPORT INFORMATION
  Report Type: Spontaneous
  Country: US (occurrence: US)
  Receive Date: 20150220
  Receipt Date: 20150220
  Transmission Date: 20150721
  Serious: No
  Sender: FDA-Public Use
  Company Number: US-ABBVIE-14P-163-1274557-00

PATIENT
  Age: 43 Year
  Sex: Female

DRUGS (6)
  1. UNKNOWN PRESCRIPTION MEDICATIONS [Concomitant]
     Indication: COLITIS
  2. HUMIRA [Suspect]
     Active Substance: ADALIMUMAB
     Indication: COLITIS
     Dates: start: 201201
  3. UNSPECIFIED STEROIDS [Suspect]
     Active Substance: UNSPECIFIED INGREDIENT
     Indication: RASH
     Dates: start: 2012
  4. UNSPECIFIED STEROIDS [Suspect]
     Active Substance: UNSPECIFIED INGREDIENT
     Indication: PRURITUS
  5. UNSPECIFIED STEROIDS [Suspect]
     Active Substance: UNSPECIFIED INGREDIENT
     Indication: SKIN EXFOLIATION
  6. UNSPECIFIED STEROIDS [Suspect]
     Active Substance: UNSPECIFIED INGREDIENT
     Indication: SKIN FISSURES

REACTIONS (9)
  - Rash [Unknown]
  - Skin exfoliation [Unknown]
  - Pruritus [Unknown]
  - Economic problem [Unknown]
  - Drug ineffective [Unknown]
  - Pain [Unknown]
  - Skin fissures [Unknown]
  - Social problem [Unknown]
  - Skin infection [Unknown]

NARRATIVE: CASE EVENT DATE: 2012
